FAERS Safety Report 10170973 (Version 2)
Quarter: 2014Q3

REPORT INFORMATION
  Report Type: Spontaneous
  Country: US (occurrence: US)
  Receive Date: 20140514
  Receipt Date: 20140703
  Transmission Date: 20150326
  Serious: Yes (Other)
  Sender: FDA-Public Use
  Company Number: US-BAYER-2014-071292

PATIENT
  Age: 27 Year
  Sex: Female

DRUGS (1)
  1. OCELLA [Suspect]
     Active Substance: DROSPIRENONE\ETHINYL ESTRADIOL
     Dosage: UNK
     Dates: start: 2008

REACTIONS (6)
  - Axillary vein thrombosis [None]
  - Thrombophlebitis superficial [None]
  - Subclavian vein thrombosis [None]
  - Pain [None]
  - Thrombosis [None]
  - Injury [None]

NARRATIVE: CASE EVENT DATE: 20101108
